FAERS Safety Report 24689758 (Version 1)
Quarter: 2024Q4

REPORT INFORMATION
  Report Type: Report from Study
  Country: CN (occurrence: CN)
  Receive Date: 20241203
  Receipt Date: 20241203
  Transmission Date: 20250115
  Serious: Yes (Other)
  Sender: ROCHE
  Company Number: CN-ROCHE-10000145687

PATIENT

DRUGS (5)
  1. MYCOPHENOLATE MOFETIL [Suspect]
     Active Substance: MYCOPHENOLATE MOFETIL
     Indication: Nephrotic syndrome
     Route: 065
  2. RITUXIMAB [Suspect]
     Active Substance: RITUXIMAB
     Indication: Nephrotic syndrome
     Dosage: 375 MG/M2 FOR CHILDREN WITH BODY WEIGHT GREATER THAN OR EQUAL TO 50 KG, 200 MG/M2 FOR CHILDREN WITH
     Route: 042
  3. PROMETHAZINE HYDROCHLORIDE [Suspect]
     Active Substance: PROMETHAZINE HYDROCHLORIDE
     Indication: Nephrotic syndrome
     Route: 048
  4. HYDROCORTISONE [Suspect]
     Active Substance: HYDROCORTISONE
     Indication: Nephrotic syndrome
     Route: 042
  5. TACROLIMUS [Suspect]
     Active Substance: TACROLIMUS
     Indication: Nephrotic syndrome
     Route: 065

REACTIONS (24)
  - Hypersensitivity [Unknown]
  - Neutrophil count decreased [Unknown]
  - Blood immunoglobulin G decreased [Unknown]
  - Bradycardia [Unknown]
  - Sinus arrhythmia [Unknown]
  - Tachypnoea [Unknown]
  - Dyspnoea [Unknown]
  - Laryngeal obstruction [Unknown]
  - Cyanosis [Unknown]
  - Oxygen saturation decreased [Unknown]
  - Rash [Unknown]
  - Heart rate increased [Unknown]
  - Abdominal pain [Unknown]
  - Dysphoria [Unknown]
  - Body temperature increased [Unknown]
  - Bronchitis [Unknown]
  - Pneumonia [Unknown]
  - Pneumocystis jirovecii pneumonia [Unknown]
  - Sepsis [Unknown]
  - Arthritis reactive [Unknown]
  - Enteritis [Unknown]
  - Haematochezia [Unknown]
  - Gastroenteritis [Unknown]
  - Off label use [Unknown]
